FAERS Safety Report 9309974 (Version 1)
Quarter: 2013Q2

REPORT INFORMATION
  Report Type: Spontaneous
  Country: IE (occurrence: IE)
  Receive Date: 20130527
  Receipt Date: 20130527
  Transmission Date: 20140414
  Serious: Yes (Other)
  Sender: FDA-Public Use
  Company Number: IE-009507513-1305IRL000278

PATIENT
  Age: 40 Year
  Sex: Female

DRUGS (1)
  1. SINEMET PLUS 25MG/100MG TABLETS [Suspect]
     Dosage: 2 DF, ONCE
     Route: 048
     Dates: start: 20130427, end: 20130427

REACTIONS (2)
  - Accidental exposure to product [Recovered/Resolved]
  - Malaise [Unknown]
